FAERS Safety Report 8979109 (Version 1)
Quarter: 2012Q4

REPORT INFORMATION
  Report Type: 
  Country: US (occurrence: US)
  Receive Date: 20121221
  Receipt Date: 20121221
  Transmission Date: 20130627
  Serious: No
  Sender: FDA-Public Use
  Company Number: US-PFIZER INC-2012323336

PATIENT
  Sex: Male

DRUGS (2)
  1. INDERAL LA [Suspect]
     Dosage: 1 full 60 mg, capsule daily
     Route: 048
     Dates: start: 1992
  2. INDERAL LA [Suspect]
     Dosage: 1/2 60 mg capsule, twice daily
     Route: 048

REACTIONS (8)
  - Drug ineffective [Unknown]
  - Inappropriate schedule of drug administration [Unknown]
  - Paraesthesia [Unknown]
  - Throat tightness [Unknown]
  - Odynophagia [Unknown]
  - Dysphagia [Unknown]
  - Rash erythematous [Unknown]
  - Rash pruritic [Unknown]
